FAERS Safety Report 14168854 (Version 2)
Quarter: 2018Q1

REPORT INFORMATION
  Report Type: Spontaneous
  Country: US (occurrence: US)
  Receive Date: 20171107
  Receipt Date: 20180303
  Transmission Date: 20180508
  Serious: No
  Sender: FDA-Public Use
  Company Number: US-009507513-1710USA015402

PATIENT
  Age: 83 Year
  Sex: Female

DRUGS (6)
  1. NORTHERA [Suspect]
     Active Substance: DROXIDOPA
     Indication: PARKINSON^S DISEASE
     Dosage: 600 MG (SCHEDULE C; TITRATION COMPLETE) / 600 MG (3 CAPSULES IN 1 DOSE, THREE TIMES A DAY
     Route: 048
     Dates: start: 20170831, end: 2017
  2. NORTHERA [Suspect]
     Active Substance: DROXIDOPA
     Indication: DIZZINESS
  3. FLORINEF ACETATE [Concomitant]
     Active Substance: FLUDROCORTISONE ACETATE
     Indication: ORTHOSTATIC HYPOTENSION
     Dosage: 0.2 MG, QD
     Dates: start: 2017
  4. POTASSIUM (UNSPECIFIED) [Concomitant]
     Active Substance: POTASSIUM
     Indication: HYPOKALAEMIA
     Dosage: 20 MILLIEQUIVALENTS (IN 1 DOSE), ONCE DAILY
     Route: 048
     Dates: start: 2017
  5. SINEMET [Suspect]
     Active Substance: CARBIDOPA\LEVODOPA
     Route: 048
  6. NORTHERA [Suspect]
     Active Substance: DROXIDOPA
     Indication: ORTHOSTATIC HYPOTENSION
     Dosage: 300 MG (3 CAPSULES IN 1 DOSE), TREE TIMES A DAY
     Route: 048
     Dates: start: 2017

REACTIONS (13)
  - Blood pressure fluctuation [Recovered/Resolved]
  - Nausea [Recovered/Resolved]
  - Drug dose omission [Unknown]
  - Hypoaesthesia [Recovered/Resolved]
  - Fatigue [Recovered/Resolved]
  - Therapeutic response decreased [Recovering/Resolving]
  - Balance disorder [Recovered/Resolved]
  - Flushing [Unknown]
  - Chills [Recovered/Resolved]
  - Blood pressure systolic increased [Recovered/Resolved]
  - Dyspnoea [Recovered/Resolved]
  - Abdominal discomfort [Recovered/Resolved]
  - Hypotension [Recovered/Resolved]

NARRATIVE: CASE EVENT DATE: 2017
